FAERS Safety Report 7677273-5 (Version None)
Quarter: 2011Q3

REPORT INFORMATION
  Report Type: 
  Country: None (occurrence: None)
  Receive Date: 20110811
  Receipt Date: 20110802
  Transmission Date: 20111222
  Serious: Yes (Other)
  Sender: FDA-Public Use
  Company Number: US-BAYER-201025501NA

PATIENT
  Age: 18 Year
  Sex: Female
  Weight: 56.689 kg

DRUGS (7)
  1. YASMIN [Suspect]
     Indication: MENSTRUATION IRREGULAR
  2. ETHINYL ESTRADIOL AND NORETHINDRONE [Concomitant]
     Dosage: UNK
     Dates: start: 20070812, end: 20081130
  3. YASMIN [Suspect]
     Indication: ORAL CONTRACEPTION
     Dosage: UNK
     Route: 048
     Dates: start: 20060504, end: 20061116
  4. ETHINYL ESTRADIOL AND NORETHINDRONE [Concomitant]
     Dosage: UNK
     Dates: start: 20070225, end: 20070617
  5. NORDETTE-21 [Concomitant]
     Dosage: UNK
     Dates: start: 20070111, end: 20070201
  6. LEVORA 0.15/30-21 [Concomitant]
     Dosage: UNK
     Dates: start: 20061105, end: 20070128
  7. ACIPHEX [Concomitant]

REACTIONS (4)
  - CHOLECYSTITIS [None]
  - GALLBLADDER NON-FUNCTIONING [None]
  - APHAGIA [None]
  - ABASIA [None]
